FAERS Safety Report 9249199 (Version 1)
Quarter: 2013Q2

REPORT INFORMATION
  Report Type: Spontaneous
  Country: US (occurrence: US)
  Receive Date: 20130422
  Receipt Date: 20130422
  Transmission Date: 20140414
  Serious: Yes (Other)
  Sender: FDA-Public Use
  Company Number: US-RB-052837-13

PATIENT
  Age: 88 Year
  Sex: Female

DRUGS (6)
  1. MUCINEX SINUS MAX CAPLETS SEVERE CONGESTION (ACETAMINOPHEN) [Suspect]
     Indication: PROPHYLAXIS
     Dosage: TOOK A DOSE AT 9:30 PM ON 08-APR-2013
     Route: 048
     Dates: start: 20130408
  2. MUCINEX SINUS MAX CAPLETS SEVERE CONGESTION (GUAIFENESIN) [Suspect]
  3. MUCINEX SINUS MAX CAPLETS SEVERE CONGESTION (PHENYLEPHRINE HCL) [Suspect]
  4. NIFEDIPINE [Concomitant]
     Indication: PRODUCT USED FOR UNKNOWN INDICATION
  5. QUINAPRIL [Concomitant]
     Indication: PRODUCT USED FOR UNKNOWN INDICATION
  6. LASIX [Concomitant]
     Indication: PRODUCT USED FOR UNKNOWN INDICATION

REACTIONS (1)
  - Hallucination [Recovered/Resolved]
